FAERS Safety Report 8764240 (Version 1)
Quarter: 2012Q4

REPORT INFORMATION
  Report Type: Spontaneous
  Country: US (occurrence: None)
  Receive Date: 20120828
  Receipt Date: 20120828
  Transmission Date: 20130627
  Serious: Yes (Other)
  Sender: FDA-Public Use
  Company Number: TPA2012A05236

PATIENT
  Age: 79 Year
  Sex: Male

DRUGS (8)
  1. ACTOS (PIOGLITAZONE HYDROCHLORIDE) [Suspect]
     Indication: TYPE 2 DIABETES MELLITUS
     Dates: start: 200201, end: 201108
  2. METFORMIN [Concomitant]
  3. GLUCOPHAGE (METFORMIN) [Concomitant]
  4. LISPRO [Concomitant]
  5. LEVEMIR (INSULIN DETEMIR) [Concomitant]
  6. AMARYL (GLIMEPIRIDE) [Concomitant]
  7. JANUVIA (SITAGLIPTIN PHOSPHATE) [Concomitant]
  8. LIPITOR (ATORVASTATIN CALCIUM) [Concomitant]

REACTIONS (2)
  - Bladder cancer [None]
  - Ureteric cancer [None]
